FAERS Safety Report 6883199-7 (Version None)
Quarter: 2010Q3

REPORT INFORMATION
  Report Type: 
  Country: None (occurrence: None)
  Receive Date: 20100727
  Receipt Date: 20071004
  Transmission Date: 20110219
  Serious: Yes (Hospitalization, Other)
  Sender: FDA-Public Use
  Company Number: US-PFIZER INC-2006108685

PATIENT
  Sex: Male

DRUGS (3)
  1. CELEBREX [Suspect]
     Indication: BACK PAIN
     Dates: start: 20000901
  2. BEXTRA [Suspect]
     Indication: BACK PAIN
     Dates: start: 20000901, end: 20030301
  3. VIOXX [Suspect]
     Indication: BACK PAIN
     Dates: start: 20000601

REACTIONS (1)
  - MYOCARDIAL INFARCTION [None]
